FAERS Safety Report 11468357 (Version 2)
Quarter: 2015Q3

REPORT INFORMATION
  Report Type: Spontaneous
  Country: US (occurrence: US)
  Receive Date: 20150903
  Receipt Date: 20150903
  Transmission Date: 20151125
  Serious: No
  Sender: FDA-Public Use
  Company Number: US-ELI_LILLY_AND_COMPANY-US201108007224

PATIENT
  Age: 70 Year
  Sex: Female

DRUGS (2)
  1. CYMBALTA [Suspect]
     Active Substance: DULOXETINE HYDROCHLORIDE
     Dosage: 60 MG, QD
     Dates: end: 20110805
  2. CYMBALTA [Suspect]
     Active Substance: DULOXETINE HYDROCHLORIDE
     Indication: FIBROMYALGIA
     Dosage: 60 MG, UNK
     Dates: start: 2009

REACTIONS (12)
  - Sleep talking [Unknown]
  - Feeling abnormal [Unknown]
  - Abnormal dreams [Unknown]
  - Pruritus generalised [Recovering/Resolving]
  - Muscle spasms [Unknown]
  - Skin disorder [Unknown]
  - Drug ineffective [Unknown]
  - Chills [Unknown]
  - Depression [Unknown]
  - Delusion [Unknown]
  - Hallucination [Unknown]
  - Malaise [Unknown]
